FAERS Safety Report 10930144 (Version 1)
Quarter: 2015Q1

REPORT INFORMATION
  Report Type: Spontaneous
  Country: US (occurrence: US)
  Receive Date: 20150319
  Receipt Date: 20150319
  Transmission Date: 20150721
  Serious: Yes (Death)
  Sender: FDA-Public Use
  Company Number: US-MYLANLABS-2015M1008168

PATIENT

DRUGS (4)
  1. BUPROPION [Suspect]
     Active Substance: BUPROPION
     Route: 065
  2. QUETIAPINE [Suspect]
     Active Substance: QUETIAPINE
     Route: 065
  3. ALPRAZOLAM. [Suspect]
     Active Substance: ALPRAZOLAM
     Route: 065
  4. ASENAPINE [Suspect]
     Active Substance: ASENAPINE
     Indication: COMPLETED SUICIDE
     Route: 048

REACTIONS (3)
  - Intentional overdose [Fatal]
  - Completed suicide [Fatal]
  - Toxicity to various agents [Fatal]
